FAERS Safety Report 8335410-3 (Version None)
Quarter: 2012Q2

REPORT INFORMATION
  Report Type: 
  Country: None (occurrence: None)
  Receive Date: 20120503
  Receipt Date: 20120427
  Transmission Date: 20120825
  Serious: Yes (Hospitalization, Disabling, Other)
  Sender: FDA-Public Use
  Company Number: US-MERCK-1112USA03023

PATIENT
  Age: 61 Year
  Sex: Female
  Weight: 88 kg

DRUGS (8)
  1. BONIVA [Suspect]
     Indication: OSTEOPOROSIS PROPHYLAXIS
     Route: 065
     Dates: start: 20060331
  2. MULTI-VITAMINS [Concomitant]
     Route: 048
  3. FOSAMAX [Suspect]
     Indication: OSTEOPOROSIS
     Route: 048
     Dates: start: 20000101, end: 20060226
  4. FOSAMAX [Suspect]
     Indication: OSTEOPOROSIS PROPHYLAXIS
     Route: 048
     Dates: start: 20000101, end: 20060226
  5. BONIVA [Suspect]
     Indication: OSTEOPOROSIS
     Route: 065
     Dates: start: 20060331
  6. FOSAMAX [Suspect]
     Route: 048
  7. VITAMIN D (UNSPECIFIED) [Concomitant]
     Route: 048
     Dates: start: 20110101
  8. FOSAMAX [Suspect]
     Route: 048

REACTIONS (44)
  - BACK PAIN [None]
  - HYPERTENSION [None]
  - HIATUS HERNIA [None]
  - GOUT [None]
  - RIB FRACTURE [None]
  - RIB DEFORMITY [None]
  - PNEUMONIA [None]
  - FRACTURE DELAYED UNION [None]
  - ABDOMINAL DISCOMFORT [None]
  - PYREXIA [None]
  - PAIN IN EXTREMITY [None]
  - FALL [None]
  - TRANSIENT ISCHAEMIC ATTACK [None]
  - HYPOAESTHESIA [None]
  - FEMUR FRACTURE [None]
  - ATELECTASIS [None]
  - RHINITIS ALLERGIC [None]
  - PLEURAL FIBROSIS [None]
  - PARAESTHESIA [None]
  - SKELETAL INJURY [None]
  - NECK PAIN [None]
  - HYPOGLYCAEMIA [None]
  - GASTROOESOPHAGEAL REFLUX DISEASE [None]
  - GAIT DISTURBANCE [None]
  - IMPLANT SITE REACTION [None]
  - HUMERUS FRACTURE [None]
  - BLOOD DISORDER [None]
  - BODY MASS INDEX INCREASED [None]
  - BLOOD CHOLESTEROL INCREASED [None]
  - EUSTACHIAN TUBE DYSFUNCTION [None]
  - SKIN CANCER [None]
  - ANAEMIA [None]
  - ANXIETY [None]
  - HYPOTHYROIDISM [None]
  - RESPIRATORY DISORDER [None]
  - LUNG DISORDER [None]
  - KIDNEY INFECTION [None]
  - CONSTIPATION [None]
  - LOW TURNOVER OSTEOPATHY [None]
  - HEADACHE [None]
  - TACHYCARDIA [None]
  - SPINAL OSTEOARTHRITIS [None]
  - INAPPROPRIATE SCHEDULE OF DRUG ADMINISTRATION [None]
  - CELLULITIS [None]
